FAERS Safety Report 15688480 (Version 1)
Quarter: 2018Q4

REPORT INFORMATION
  Report Type: Spontaneous
  Country: JP (occurrence: JP)
  Receive Date: 20181205
  Receipt Date: 20181205
  Transmission Date: 20190205
  Serious: Yes (Death, Hospitalization, Other)
  Sender: FDA-Public Use
  Company Number: JP-ASTELLAS-2018US051816

PATIENT
  Age: 5 Decade
  Sex: Female

DRUGS (1)
  1. AMPHOTERICIN B, LIPOSOME [Suspect]
     Active Substance: AMPHOTERICIN B
     Indication: DEVICE RELATED INFECTION
     Dosage: UNK UNK, UNKNOWN FREQ.
     Route: 041

REACTIONS (4)
  - Ischaemia [Unknown]
  - Hepatic function abnormal [Unknown]
  - Death [Fatal]
  - Blood potassium decreased [Unknown]
